FAERS Safety Report 24673167 (Version 1)
Quarter: 2024Q4

REPORT INFORMATION
  Report Type: Spontaneous
  Country: US (occurrence: US)
  Receive Date: 20241128
  Receipt Date: 20241128
  Transmission Date: 20250114
  Serious: No
  Sender: IBSA INSTITUT BIOCHIMIQUE
  Company Number: US-IBSA PHARMA INC.-2024IBS000098

PATIENT

DRUGS (1)
  1. TIROSINT [Suspect]
     Active Substance: LEVOTHYROXINE SODIUM
     Indication: Product used for unknown indication
     Dosage: UNK
     Route: 048
     Dates: start: 2024, end: 2024

REACTIONS (5)
  - Trichorrhexis [Unknown]
  - Sensitive skin [Unknown]
  - Emotional distress [Unknown]
  - Feeling abnormal [Unknown]
  - Alopecia [Unknown]
